FAERS Safety Report 9068330 (Version 1)
Quarter: 2013Q1

REPORT INFORMATION
  Report Type: Spontaneous
  Country: PT (occurrence: PT)
  Receive Date: 20130206
  Receipt Date: 20130206
  Transmission Date: 20140127
  Serious: Yes (Death)
  Sender: FDA-Public Use
  Company Number: PT-BAXTER-2013BAX003771

PATIENT
  Sex: Male

DRUGS (4)
  1. EXTRANEAL 75MG/ML - SACO - 5 UNIDADE(S) - 2000 ML [Suspect]
     Indication: RENAL FAILURE CHRONIC
     Route: 033
     Dates: start: 20090723
  2. EXTRANEAL 75MG/ML - SACO - 5 UNIDADE(S) - 2000 ML [Suspect]
     Indication: PERITONEAL DIALYSIS
     Route: 033
     Dates: start: 20121120
  3. PHYSIONEAL [Suspect]
     Indication: RENAL FAILURE CHRONIC
     Route: 033
     Dates: start: 20090723
  4. PHYSIONEAL [Suspect]
     Indication: PERITONEAL DIALYSIS
     Route: 033
     Dates: start: 20121120

REACTIONS (9)
  - Death [Fatal]
  - Impaired self-care [Unknown]
  - Hypokinesia [Unknown]
  - Diet refusal [Unknown]
  - Dementia [Unknown]
  - Diabetic arthropathy [Unknown]
  - General physical health deterioration [Unknown]
  - Diabetic complication [Unknown]
  - Cachexia [Unknown]
